FAERS Safety Report 24147241 (Version 1)
Quarter: 2024Q3

REPORT INFORMATION
  Report Type: Report from Study
  Country: CA (occurrence: CA)
  Receive Date: 20240729
  Receipt Date: 20240729
  Transmission Date: 20241016
  Serious: Yes (Hospitalization)
  Sender: EISAI
  Company Number: CA-Eisai-EC-2024-169537

PATIENT
  Age: 57 Year
  Sex: Female

DRUGS (1)
  1. LENVIMA [Suspect]
     Active Substance: LENVATINIB
     Indication: Adenoid cystic carcinoma
     Route: 048
     Dates: start: 20240619

REACTIONS (4)
  - Decreased appetite [Unknown]
  - Dehydration [Unknown]
  - Hypotension [Unknown]
  - Oral pain [Unknown]

NARRATIVE: CASE EVENT DATE: 20240101
